FAERS Safety Report 7609832-X (Version None)
Quarter: 2011Q3

REPORT INFORMATION
  Report Type: 
  Country: None (occurrence: None)
  Receive Date: 20110714
  Receipt Date: 20110706
  Transmission Date: 20111222
  Serious: Yes (Other)
  Sender: FDA-Public Use
  Company Number: IN-BAXTER-2011BH022801

PATIENT
  Sex: Female

DRUGS (7)
  1. LEUCOVORIN CALCIUM [Suspect]
     Indication: GESTATIONAL TROPHOBLASTIC TUMOUR
     Route: 040
  2. VINCRISTINE SULFATE [Suspect]
     Indication: GESTATIONAL TROPHOBLASTIC TUMOUR
     Route: 040
  3. METHOTREXATE [Suspect]
     Indication: GESTATIONAL TROPHOBLASTIC TUMOUR
     Route: 042
  4. CYCLOPHOSPHAMIDE [Suspect]
     Indication: GESTATIONAL TROPHOBLASTIC TUMOUR
     Route: 042
  5. METHOTREXATE [Suspect]
     Route: 037
  6. ETOPOSIDE [Suspect]
     Indication: GESTATIONAL TROPHOBLASTIC TUMOUR
     Route: 042
  7. ACTINOMYCIN [Suspect]
     Indication: GESTATIONAL TROPHOBLASTIC TUMOUR
     Route: 040

REACTIONS (1)
  - MATERNAL EXPOSURE DURING PREGNANCY [None]
